FAERS Safety Report 5179696-5 (Version None)
Quarter: 2006Q4

REPORT INFORMATION
  Report Type: 
  Country: None (occurrence: None)
  Receive Date: 20061212
  Receipt Date: 20061205
  Transmission Date: 20070319
  Serious: Yes (Other)
  Sender: FDA-Public Use
  Company Number: 200612AGG00531

PATIENT
  Age: 71 Year
  Sex: Male
  Weight: 70 kg

DRUGS (4)
  1. AGGRASTAT [Suspect]
  2. JUSPRIN (ASA) [Concomitant]
  3. PLAVIX [Concomitant]
  4. FRAXIPARINE (NADROPARIN CALCIUM) [Concomitant]

REACTIONS (1)
  - HAEMATURIA [None]
